FAERS Safety Report 18571385 (Version 1)
Quarter: 2020Q4

REPORT INFORMATION
  Report Type: Spontaneous
  Country: JP (occurrence: JP)
  Receive Date: 20201202
  Receipt Date: 20201202
  Transmission Date: 20210114
  Serious: Yes (Hospitalization, Other)
  Sender: FDA-Public Use
  Company Number: NVSJ2020JP012933

PATIENT
  Sex: Male

DRUGS (1)
  1. SYMMETREL [Suspect]
     Active Substance: AMANTADINE HYDROCHLORIDE
     Indication: PARKINSONISM
     Dosage: 100 MG
     Route: 048

REACTIONS (3)
  - Chronic kidney disease [Recovering/Resolving]
  - Hallucination, visual [Recovering/Resolving]
  - Overdose [Unknown]
